FAERS Safety Report 9200556 (Version 2)
Quarter: 2013Q2

REPORT INFORMATION
  Report Type: Spontaneous
  Country: CA (occurrence: CA)
  Receive Date: 20130329
  Receipt Date: 20130414
  Transmission Date: 20140414
  Serious: Yes (Other)
  Sender: FDA-Public Use
  Company Number: CA-AMGEN-CANSP2013022015

PATIENT
  Age: 50 Year
  Sex: Female

DRUGS (1)
  1. ENBREL [Suspect]
     Indication: RHEUMATOID ARTHRITIS
     Dosage: UNK
     Dates: start: 20121015, end: 20130201

REACTIONS (4)
  - Fatigue [Recovering/Resolving]
  - Abasia [Recovering/Resolving]
  - Activities of daily living impaired [Recovering/Resolving]
  - Drug effect incomplete [Recovering/Resolving]
